FAERS Safety Report 12544656 (Version 1)
Quarter: 2016Q3

REPORT INFORMATION
  Report Type: Spontaneous
  Country: DE (occurrence: DE)
  Receive Date: 20160711
  Receipt Date: 20160711
  Transmission Date: 20161109
  Serious: Yes (Congenital Anomaly, Other)
  Sender: FDA-Public Use
  Company Number: DE-AUROBINDO-AUR-APL-2016-08582

PATIENT
  Age: 1 Day
  Sex: Female
  Weight: 2.22 kg

DRUGS (6)
  1. DEKRISTOL [Concomitant]
     Active Substance: CHOLECALCIFEROL
     Indication: OSTEOPOROSIS PROPHYLAXIS
     Dosage: 1000 IU, DAILY
     Route: 064
     Dates: start: 20150310, end: 20150413
  2. CYTOTEC [Concomitant]
     Active Substance: MISOPROSTOL
     Indication: LABOUR INDUCTION
     Dosage: UNK
     Route: 064
     Dates: start: 20151119, end: 20151119
  3. AMPICILLIN [Concomitant]
     Active Substance: AMPICILLIN
     Indication: INFECTION PROPHYLAXIS
     Dosage: UNK
     Route: 064
     Dates: start: 20151119, end: 20151119
  4. ESCITALOPRAM [Suspect]
     Active Substance: ESCITALOPRAM OXALATE
     Indication: DEPRESSION
     Dosage: 10 MG, DAILY
     Route: 064
     Dates: start: 20150310, end: 20151119
  5. DECORTIN-H                         /00016201/ [Suspect]
     Active Substance: PREDNISOLONE HEMISUCCINATE
     Indication: SARCOIDOSIS
     Dosage: 5.5 MG, DAILY
     Route: 064
     Dates: start: 20150310, end: 20151119
  6. L-THYROXIN [Concomitant]
     Active Substance: LEVOTHYROXINE SODIUM
     Indication: HYPOTHYROIDISM
     Dosage: 75 MCG, DAILY
     Route: 064
     Dates: start: 20150310, end: 20151119

REACTIONS (5)
  - Kidney duplex [Not Recovered/Not Resolved]
  - Respiratory disorder neonatal [Recovered/Resolved]
  - Congenital hydronephrosis [Unknown]
  - Hypotonia neonatal [Unknown]
  - Bradycardia neonatal [Recovered/Resolved]

NARRATIVE: CASE EVENT DATE: 20151119
